FAERS Safety Report 8647911 (Version 3)
Quarter: 2012Q4

REPORT INFORMATION
  Report Type: 
  Country: FR (occurrence: FR)
  Receive Date: 20120703
  Receipt Date: 20121228
  Transmission Date: 20130627
  Serious: Yes (Other)
  Sender: FDA-Public Use
  Company Number: FR-UCBSA-053486

PATIENT
  Age: 48 Year
  Sex: Female
  Weight: 54 kg

DRUGS (19)
  1. CIMZIA [Suspect]
     Indication: PSORIASIS
     Route: 058
     Dates: start: 20110129, end: 201102
  2. CIMZIA [Suspect]
     Indication: SPONDYLITIS
     Route: 058
     Dates: start: 20110129, end: 201102
  3. CIMZIA [Suspect]
     Indication: PSORIASIS
     Dosage: DOSE: 400MG
     Route: 058
     Dates: start: 20110226, end: 2011
  4. CIMZIA [Suspect]
     Indication: SPONDYLITIS
     Dosage: DOSE: 400MG
     Route: 058
     Dates: start: 20110226, end: 2011
  5. CIMZIA [Suspect]
     Indication: PSORIASIS
     Route: 058
     Dates: start: 20110409, end: 2011
  6. CIMZIA [Suspect]
     Indication: SPONDYLITIS
     Route: 058
     Dates: start: 20110409, end: 2011
  7. CIMZIA [Suspect]
     Indication: PSORIASIS
     Dosage: DECREASED TO ONE INJECTION MONTHLY
     Route: 058
     Dates: start: 20111101, end: 20120906
  8. CIMZIA [Suspect]
     Indication: SPONDYLITIS
     Dosage: DECREASED TO ONE INJECTION MONTHLY
     Route: 058
     Dates: start: 20111101, end: 20120906
  9. SIMPONI [Suspect]
  10. CORTICOIDS [Concomitant]
  11. TOPALGIC [Concomitant]
     Dosage: FOR AROUND 20 YEARS
     Route: 048
  12. FORSTEO [Concomitant]
  13. APRANAX [Concomitant]
     Dosage: FOR 25 YEARS
     Route: 048
  14. CALTRATE D3 [Concomitant]
     Dosage: 1 TAB DAILY
     Route: 048
  15. UVEDOSE [Concomitant]
     Dosage: 1 UNIT MONTHLY
     Route: 048
  16. MOPRAL [Concomitant]
     Dosage: 20 MG DAILY
     Route: 048
  17. MYOLASTAN [Concomitant]
     Dosage: 1 UNIT DAILY
     Route: 048
  18. PIASCLEDINE [Concomitant]
     Dosage: 1 UNIT DAILY
     Route: 048
  19. CORTANCYL [Concomitant]
     Dosage: 7 MG + 5 MG DAILY
     Route: 048
     Dates: start: 1991

REACTIONS (34)
  - Alopecia [Recovered/Resolved]
  - Delirium [Unknown]
  - Arthritis infective [Recovered/Resolved]
  - Cellulitis [Recovered/Resolved]
  - Conjunctival haemorrhage [Unknown]
  - Haematochezia [Recovered/Resolved]
  - Hypertension [Unknown]
  - Abdominal distension [Recovered/Resolved]
  - Faecaloma [Recovered/Resolved]
  - Oedema peripheral [Recovered/Resolved]
  - Weight increased [Not Recovered/Not Resolved]
  - Abdominal pain [Recovered/Resolved]
  - Myalgia [Recovered/Resolved]
  - Headache [Recovered/Resolved]
  - Insomnia [Unknown]
  - Accommodation disorder [Unknown]
  - Dry eye [Unknown]
  - Skin disorder [Unknown]
  - Hair texture abnormal [Recovered/Resolved]
  - Appetite disorder [Not Recovered/Not Resolved]
  - Bulimia nervosa [Not Recovered/Not Resolved]
  - Hypercholesterolaemia [Unknown]
  - Irritability [Recovered/Resolved]
  - Face oedema [Recovered/Resolved]
  - Arthralgia [Unknown]
  - Night sweats [Unknown]
  - Blood uric acid increased [Unknown]
  - Somnambulism [Unknown]
  - Mucous stools [Not Recovered/Not Resolved]
  - Inappropriate schedule of drug administration [Unknown]
  - Prescribed overdose [Unknown]
  - Drug ineffective [Unknown]
  - Pain [Unknown]
  - Memory impairment [Recovered/Resolved]
